FAERS Safety Report 6684240-7 (Version None)
Quarter: 2010Q2

REPORT INFORMATION
  Report Type: 
  Country: None (occurrence: None)
  Receive Date: 20100416
  Receipt Date: 20100406
  Transmission Date: 20101027
  Serious: Yes (Other)
  Sender: FDA-Public Use
  Company Number: US-AMGEN-US404727

PATIENT
  Age: 36 Year
  Sex: Female
  Weight: 79.9 kg

DRUGS (5)
  1. ETANERCEPT [Suspect]
     Indication: RHEUMATOID ARTHRITIS
  2. METHOTREXATE [Suspect]
  3. HYDROXYCHLOROQUINE SULFATE [Suspect]
  4. SULFASALAZINE [Suspect]
  5. SALSALATE [Concomitant]

REACTIONS (2)
  - OVARIAN CYST [None]
  - VAGINAL HAEMORRHAGE [None]
